FAERS Safety Report 13067650 (Version 1)
Quarter: 2016Q4

REPORT INFORMATION
  Report Type: Other
  Country: DE (occurrence: DE)
  Receive Date: 20161228
  Receipt Date: 20161228
  Transmission Date: 20170207
  Serious: Yes (Other)
  Sender: FDA-Public Use
  Company Number: DE-MACLEODS PHARMACEUTICALS US LTD-MAC2016004103

PATIENT

DRUGS (2)
  1. ESCITALOPRAM [Suspect]
     Active Substance: ESCITALOPRAM OXALATE
     Indication: ANXIETY DISORDER
     Dosage: 10 MG, QD (0-35.5 GESTATIONAL WEEK)
     Route: 064
     Dates: start: 20150807, end: 20160413
  2. FOLSAURE [Concomitant]
     Active Substance: FOLIC ACID
     Indication: PROPHYLAXIS OF NEURAL TUBE DEFECT
     Dosage: UNK
     Route: 064

REACTIONS (4)
  - Respiratory disorder neonatal [Recovered/Resolved]
  - Premature baby [Unknown]
  - Small for dates baby [Recovered/Resolved]
  - Foetal exposure during pregnancy [Unknown]

NARRATIVE: CASE EVENT DATE: 20160413
